FAERS Safety Report 9580896 (Version 1)
Quarter: 2013Q4

REPORT INFORMATION
  Report Type: Spontaneous
  Country: US (occurrence: US)
  Receive Date: 20131002
  Receipt Date: 20131002
  Transmission Date: 20140711
  Serious: Yes (Hospitalization)
  Sender: FDA-Public Use
  Company Number: US-PFIZER INC-2013280981

PATIENT
  Age: 49 Year
  Sex: Male
  Weight: 116 kg

DRUGS (4)
  1. LYRICA [Suspect]
     Indication: NEUROPATHY PERIPHERAL
     Dosage: 100 MG, 3X/DAY
  2. LYRICA [Suspect]
     Dosage: 200MG IN THE MORNING, 200MG IN THE AFTERNOON AND 200-300MG AT NIGHT (3X/DAY)
     Dates: end: 2013
  3. METFORMIN [Concomitant]
     Indication: DIABETES MELLITUS
     Dosage: 1000 MG, 2X/DAY
  4. GLIPIZIDE [Concomitant]
     Indication: DIABETES MELLITUS
     Dosage: 5 MG, 3X/DAY

REACTIONS (5)
  - Intentional drug misuse [Unknown]
  - Skin ulcer [Unknown]
  - Gastrointestinal disorder [Unknown]
  - Pain [Unknown]
  - Drug ineffective [Unknown]
